FAERS Safety Report 19477454 (Version 1)
Quarter: 2021Q2

REPORT INFORMATION
  Report Type: Spontaneous
  Country: US (occurrence: US)
  Receive Date: 20210630
  Receipt Date: 20210630
  Transmission Date: 20210717
  Serious: Yes (Disabling)
  Sender: FDA-Public Use
  Company Number: None

PATIENT
  Age: 37 Year
  Sex: Female
  Weight: 81 kg

DRUGS (5)
  1. BUPROPION HCL SR 100 MG [Suspect]
     Active Substance: BUPROPION HYDROCHLORIDE
     Indication: DEPRESSION
     Route: 048
  2. CLONAZEPAM. [Concomitant]
     Active Substance: CLONAZEPAM
  3. MULTIVITAMIN [Concomitant]
     Active Substance: VITAMINS
  4. ZYRTEC [Concomitant]
     Active Substance: CETIRIZINE HYDROCHLORIDE
  5. ACETAMINOPHEN. [Concomitant]
     Active Substance: ACETAMINOPHEN

REACTIONS (5)
  - Product substitution issue [None]
  - Mood altered [None]
  - Hyperresponsive to stimuli [None]
  - Depressed mood [None]
  - Therapy interrupted [None]

NARRATIVE: CASE EVENT DATE: 20210602
